FAERS Safety Report 6600647-8 (Version None)
Quarter: 2010Q1

REPORT INFORMATION
  Report Type: 
  Country: None (occurrence: None)
  Receive Date: 20100223
  Receipt Date: 20100223
  Transmission Date: 20100710
  Serious: No
  Sender: FDA-Public Use
  Company Number: None

PATIENT
  Sex: Female
  Weight: 68.0396 kg

DRUGS (2)
  1. FLUOXETINE [Suspect]
     Indication: DEPRESSION
     Dosage: 20 MG BID ORAL
     Route: 048
     Dates: start: 20060214
  2. PAXIL [Suspect]
     Indication: ANXIETY
     Dosage: ORAL
     Route: 048

REACTIONS (6)
  - ANXIETY [None]
  - DRUG INEFFECTIVE [None]
  - DRUG INTOLERANCE [None]
  - IRRITABILITY [None]
  - PRODUCT SUBSTITUTION ISSUE [None]
  - SEXUAL DYSFUNCTION [None]
